FAERS Safety Report 6919225-6 (Version None)
Quarter: 2010Q3

REPORT INFORMATION
  Report Type: 
  Country: None (occurrence: None)
  Receive Date: 20100810
  Receipt Date: 20100810
  Transmission Date: 20110219
  Serious: No
  Sender: FDA-Public Use
  Company Number: None

PATIENT

DRUGS (2)
  1. FUROSEMIDE 20MG/2ML HOSPIRA [Suspect]
  2. MIDAZOLAM HCL [Suspect]
     Dosage: 0.5MG ONCE IV
     Route: 042
     Dates: start: 20100807, end: 20100807

REACTIONS (3)
  - MEDICATION ERROR [None]
  - PRODUCT PACKAGING ISSUE [None]
  - WRONG DRUG ADMINISTERED [None]
